FAERS Safety Report 7603412-8 (Version None)
Quarter: 2011Q3

REPORT INFORMATION
  Report Type: 
  Country: None (occurrence: None)
  Receive Date: 20110701
  Receipt Date: 20110617
  Transmission Date: 20111222
  Serious: Yes (Hospitalization)
  Sender: FDA-Public Use
  Company Number: AUR-APL-2011-01692

PATIENT
  Age: 53 Year
  Sex: Male
  Weight: 90 kg

DRUGS (5)
  1. ZACPAC (ZACPAC) [Suspect]
     Indication: PRODUCT USED FOR UNKNOWN INDICATION
     Dosage: ORAL
     Route: 048
     Dates: start: 20110507, end: 20110507
  2. BISOPROLOL FUMARATE [Suspect]
     Indication: PRODUCT USED FOR UNKNOWN INDICATION
     Dosage: 300 MG, ORAL
     Route: 048
     Dates: start: 20110507, end: 20110507
  3. IBUPROFEN [Suspect]
     Indication: PRODUCT USED FOR UNKNOWN INDICATION
     Dosage: 6000 MG, ORAL
     Route: 048
     Dates: start: 20110507, end: 20110507
  4. DIMENHYDRINATE [Suspect]
     Indication: PRODUCT USED FOR UNKNOWN INDICATION
     Dosage: ORAL
     Route: 048
     Dates: start: 20110507, end: 20110507
  5. SIMVASTATIN [Suspect]
     Indication: PRODUCT USED FOR UNKNOWN INDICATION
     Dosage: 1000 MG, ORAL
     Route: 048
     Dates: start: 20110507, end: 20110507

REACTIONS (9)
  - HYPOTENSION [None]
  - DEHYDRATION [None]
  - SOMNOLENCE [None]
  - CARDIOVASCULAR DISORDER [None]
  - VOMITING [None]
  - SUICIDE ATTEMPT [None]
  - BRADYCARDIA [None]
  - NAUSEA [None]
  - MULTIPLE DRUG OVERDOSE INTENTIONAL [None]
